FAERS Safety Report 4501285-3 (Version None)
Quarter: 2004Q4

REPORT INFORMATION
  Report Type: 
  Country: None (occurrence: None)
  Receive Date: 20041110
  Receipt Date: 20041027
  Transmission Date: 20050328
  Serious: Yes (Other)
  Sender: FDA-Public Use
  Company Number: 2004238973GB

PATIENT
  Age: 13 Year
  Sex: Female

DRUGS (1)
  1. BEXTRA [Suspect]
     Indication: DYSMENORRHOEA
     Dosage: 40 MG, QD, ORAL
     Route: 048
     Dates: start: 20040915, end: 20040916

REACTIONS (2)
  - OEDEMA PERIPHERAL [None]
  - RASH GENERALISED [None]
